FAERS Safety Report 8037428-7 (Version None)
Quarter: 2011Q4

REPORT INFORMATION
  Report Type: 
  Country: None (occurrence: None)
  Receive Date: 20111202
  Receipt Date: 20091007
  Transmission Date: 20120403
  Serious: Yes (Hospitalization)
  Sender: FDA-Public Use
  Company Number: 2009SP029611

PATIENT
  Age: 26 Year
  Sex: Female
  Weight: 86.1834 kg

DRUGS (7)
  1. ZOLOFT [Concomitant]
  2. NUVARING [Suspect]
     Indication: CONTRACEPTION
  3. NUVARING [Suspect]
     Indication: MUSCLE SPASMS
  4. NUVARING [Suspect]
     Indication: HAEMORRHAGE
  5. ALBUTEROL [Concomitant]
  6. CAFFEINE CITRATE [Concomitant]
  7. MULTIVITAMIN WITH IRON [Concomitant]

REACTIONS (12)
  - CANDIDIASIS [None]
  - DERMATITIS CONTACT [None]
  - DEPRESSION [None]
  - TINEA INFECTION [None]
  - FOLLICULITIS [None]
  - PULMONARY EMBOLISM [None]
  - BACK PAIN [None]
  - SPINAL DISORDER [None]
  - BRONCHITIS [None]
  - EPISTAXIS [None]
  - PHARYNGITIS [None]
  - PULMONARY INFARCTION [None]
